FAERS Safety Report 5228830-7 (Version None)
Quarter: 2007Q1

REPORT INFORMATION
  Report Type: 
  Country: None (occurrence: None)
  Receive Date: 20061201
  Receipt Date: 20061002
  Transmission Date: 20070707
  Serious: No
  Sender: FDA-Public Use
  Company Number: US200610000462

PATIENT
  Age: 57 Year
  Sex: Female

DRUGS (7)
  1. CYMBALTA [Suspect]
     Indication: DEPRESSION
     Dosage: SEE IMAGE
     Dates: start: 20050401
  2. NORVASC [Concomitant]
  3. PROTONIX [Concomitant]
  4. PROVIGIL (MODADFINIL) [Concomitant]
  5. RELAFEN [Concomitant]
  6. PREMARI /NEZ/ (ESTROGENS CONJUGATED) [Concomitant]
  7. NORCO [Concomitant]

REACTIONS (3)
  - DEPRESSION [None]
  - DRUG EFFECT DECREASED [None]
  - MANIA [None]
